FAERS Safety Report 9201505 (Version 1)
Quarter: 2013Q2

REPORT INFORMATION
  Report Type: Spontaneous
  Country: US (occurrence: US)
  Receive Date: 20130401
  Receipt Date: 20130401
  Transmission Date: 20140414
  Serious: No
  Sender: FDA-Public Use
  Company Number: US-BAYER-2013-039911

PATIENT
  Sex: Male

DRUGS (1)
  1. ALEVE CAPLET [Suspect]
     Indication: TOOTHACHE
     Dosage: 3 DF, ONCE
     Dates: start: 20130322, end: 20130322

REACTIONS (2)
  - Inappropriate schedule of drug administration [None]
  - Expired drug administered [None]
